FAERS Safety Report 8651856 (Version 5)
Quarter: 2012Q4

REPORT INFORMATION
  Report Type: Report from Study
  Country: NL (occurrence: NL)
  Receive Date: 20120706
  Receipt Date: 20121025
  Transmission Date: 20130627
  Serious: Yes (Hospitalization)
  Sender: FDA-Public Use
  Company Number: NL-JNJFOC-20120700388

PATIENT
  Age: 17 Year
  Sex: Male
  Weight: 63 kg

DRUGS (4)
  1. REMICADE [Suspect]
     Indication: CROHN^S DISEASE
     Route: 042
     Dates: start: 20091113, end: 20101207
  2. HUMIRA [Concomitant]
     Dates: start: 20101222
  3. PREDNISONE [Concomitant]
     Indication: CROHN^S DISEASE
     Route: 048
     Dates: start: 20120618
  4. 6-MERCAPTOPURINE [Concomitant]

REACTIONS (1)
  - Crohn^s disease [Recovered/Resolved with Sequelae]
